FAERS Safety Report 17922980 (Version 1)
Quarter: 2020Q2

REPORT INFORMATION
  Report Type: Spontaneous
  Country: US (occurrence: US)
  Receive Date: 20200621
  Receipt Date: 20200621
  Transmission Date: 20200714
  Serious: Yes (Disabling)
  Sender: FDA-Public Use
  Company Number: None

PATIENT
  Age: 51 Year
  Sex: Female
  Weight: 81 kg

DRUGS (5)
  1. GENTEAL TEARS SEVERE [Suspect]
     Active Substance: HYPROMELLOSE 2910 (4000 MPA.S)
     Indication: DRY EYE
     Route: 061
     Dates: start: 20170512, end: 20200304
  2. MONTELUKAST [Concomitant]
     Active Substance: MONTELUKAST SODIUM
  3. NASAL FLUTICASONE [Concomitant]
  4. ZYRTEC [Concomitant]
     Active Substance: CETIRIZINE HYDROCHLORIDE
  5. GENTEAL TEARS SEVERE [Suspect]
     Active Substance: HYPROMELLOSE 2910 (4000 MPA.S)
     Indication: POST PROCEDURAL COMPLICATION
     Route: 061
     Dates: start: 20170512, end: 20200304

REACTIONS (4)
  - Impaired work ability [None]
  - Visual impairment [None]
  - Conjunctivitis [None]
  - Allergic reaction to excipient [None]

NARRATIVE: CASE EVENT DATE: 20200115
